FAERS Safety Report 8756387 (Version 3)
Quarter: 2013Q1

REPORT INFORMATION
  Report Type: Spontaneous
  Country: CA (occurrence: None)
  Receive Date: 20120814
  Receipt Date: 20120928
  Transmission Date: 20140127
  Serious: Yes (Death, Life-Threatening, Hospitalization)
  Sender: FDA-Public Use
  Company Number: 2012033017

PATIENT
  Age: 63 Year
  Sex: Female

DRUGS (5)
  1. PRIVIGEN [Suspect]
     Indication: IDIOPATHIC THROMBOCYTOPENIC PURPURA
     Route: 042
     Dates: start: 20120803, end: 20120803
  2. PREDNISONE (PREDNISONE) [Concomitant]
  3. PLAVIX /01220701/ (CLOPIDOGREL) [Concomitant]
  4. NTG (GLYCERYL TRINITRATE) [Concomitant]
  5. ASA (ACETYLSALICYLIC ACID) [Concomitant]

REACTIONS (21)
  - Transfusion-related acute lung injury [None]
  - Respiratory failure [None]
  - Acute respiratory distress syndrome [None]
  - Petechiae [None]
  - Pulseless electrical activity [None]
  - Nausea [None]
  - Vomiting [None]
  - Cardiac arrest [None]
  - Ischaemia [None]
  - Metabolic acidosis [None]
  - Shock [None]
  - Sepsis [None]
  - Pulmonary embolism [None]
  - Cardiac tamponade [None]
  - Lung infiltration [None]
  - Headache [None]
  - Dialysis [None]
  - Electrocardiogram ST segment depression [None]
  - Anxiety [None]
  - Pneumonia aspiration [None]
  - Tachycardia [None]
